FAERS Safety Report 23635307 (Version 2)
Quarter: 2024Q2

REPORT INFORMATION
  Report Type: Spontaneous
  Country: ES (occurrence: ES)
  Receive Date: 20240315
  Receipt Date: 20240410
  Transmission Date: 20240716
  Serious: Yes (Hospitalization, Other)
  Sender: FDA-Public Use
  Company Number: ES-MLMSERVICE-20240227-4852038-1

PATIENT
  Age: 71 Year
  Sex: Female

DRUGS (6)
  1. MYCOPHENOLIC ACID [Suspect]
     Active Substance: MYCOPHENOLIC ACID
     Indication: Immunosuppressant drug therapy
     Dosage: UNK
     Route: 065
     Dates: start: 2020, end: 202012
  2. LEVOFLOXACIN [Suspect]
     Active Substance: LEVOFLOXACIN
     Indication: Rhodococcus infection
     Dosage: 500 MILLIGRAM, ONCE A DAY
     Route: 048
  3. COTRIMOXAZOLE [Suspect]
     Active Substance: SULFAMETHOXAZOLE\TRIMETHOPRIM
     Indication: Rhodococcus infection
     Dosage: UNK, (800/160 MG)TWO TIMES A DAY
     Route: 065
  4. TACROLIMUS [Concomitant]
     Active Substance: TACROLIMUS
     Indication: Immunosuppressant drug therapy
     Dosage: UNK
     Route: 065
  5. VANCOMYCIN [Concomitant]
     Active Substance: VANCOMYCIN
     Indication: Rhodococcus infection
     Dosage: 15 MILLIGRAM/KILOGRAM
     Route: 042
  6. RIFAMPIN [Concomitant]
     Active Substance: RIFAMPIN
     Indication: Rhodococcus infection
     Dosage: 900 MILLIGRAM, ONCE A DAY
     Route: 065

REACTIONS (4)
  - Mediastinitis [Unknown]
  - Condition aggravated [Unknown]
  - Myelosuppression [Unknown]
  - Drug ineffective [Unknown]

NARRATIVE: CASE EVENT DATE: 20200101
